FAERS Safety Report 17077973 (Version 2)
Quarter: 2020Q1

REPORT INFORMATION
  Report Type: Spontaneous
  Country: US (occurrence: US)
  Receive Date: 20191126
  Receipt Date: 20200130
  Transmission Date: 20200409
  Serious: Yes (Other)
  Sender: FDA-Public Use
  Company Number: US-BAUSCH-BL-2019-062330

PATIENT
  Sex: Male

DRUGS (2)
  1. SILIQ [Suspect]
     Active Substance: BRODALUMAB
     Dosage: PFS 210MG/1.5ML
     Route: 058
  2. SILIQ [Suspect]
     Active Substance: BRODALUMAB
     Indication: PRODUCT USED FOR UNKNOWN INDICATION
     Dosage: PFS 210MG/1.5ML
     Route: 058
     Dates: start: 2018, end: 2019

REACTIONS (3)
  - Influenza [Unknown]
  - Myocardial infarction [Unknown]
  - Dental care [Unknown]

NARRATIVE: CASE EVENT DATE: 2019
